FAERS Safety Report 23155700 (Version 1)
Quarter: 2023Q4

REPORT INFORMATION
  Report Type: Spontaneous
  Country: US (occurrence: US)
  Receive Date: 20231107
  Receipt Date: 20231107
  Transmission Date: 20240109
  Serious: No
  Sender: FDA-Public Use
  Company Number: US-SA-SAC20231030002517

PATIENT
  Sex: Male
  Weight: 113 kg

DRUGS (12)
  1. DUPIXENT [Suspect]
     Active Substance: DUPILUMAB
     Indication: Asthma
     Dosage: 300 MG, QOW
     Route: 058
     Dates: start: 202206
  2. ALBUTEROL SULFATE [Concomitant]
     Active Substance: ALBUTEROL SULFATE
     Dosage: UNK
     Route: 065
  3. BISACODYL [Concomitant]
     Active Substance: BISACODYL
     Dosage: UNK
     Route: 065
  4. LOTRIMIN AF [CLOTRIMAZOLE] [Concomitant]
     Dosage: UNK
     Route: 065
  5. FLOVENT HFA [Concomitant]
     Active Substance: FLUTICASONE PROPIONATE
     Dosage: UNK
     Route: 065
  6. CENTRUM FRESH + FRUITY [Concomitant]
     Dosage: UNK
     Route: 065
  7. CALCIUM\CHOLECALCIFEROL [Concomitant]
     Active Substance: CALCIUM\CHOLECALCIFEROL
     Dosage: UNK
     Route: 065
  8. AMMONIUM LACTATE [Concomitant]
     Active Substance: AMMONIUM LACTATE
     Dosage: UNK
     Route: 065
  9. VITAMIN B COMPLEX WITH VITAMIN C [ASCORBIC ACID;VITAMIN B COMPLEX] [Concomitant]
     Dosage: UNK
     Route: 065
  10. MODERNA COVID-19 VACCINE [Concomitant]
     Active Substance: ELASOMERAN
     Dosage: UNK
     Route: 065
  11. AMLODIPINE + ATORVASTATIN [Concomitant]
     Dosage: UNK
     Route: 065
  12. ABILIFY MAINTENA [Concomitant]
     Active Substance: ARIPIPRAZOLE
     Dosage: UNK
     Route: 065

REACTIONS (1)
  - Arthralgia [Recovered/Resolved]
